FAERS Safety Report 4930958-3 (Version None)
Quarter: 2006Q1

REPORT INFORMATION
  Report Type: 
  Country: None (occurrence: None)
  Receive Date: 20060227
  Receipt Date: 20060214
  Transmission Date: 20060701
  Serious: Yes (Hospitalization)
  Sender: FDA-Public Use
  Company Number: 163-C5013-06020300

PATIENT
  Age: 69 Year
  Sex: Male
  Weight: 98 kg

DRUGS (2)
  1. CC-5013 (CAPSULES) [Suspect]
     Indication: MULTIPLE MYELOMA
     Dosage: 25 MG, QD ON DAYS 1-21 Q28D, ORAL
     Route: 048
     Dates: start: 20050813, end: 20060203
  2. DEXAMETHASONE [Suspect]
     Indication: MULTIPLE MYELOMA
     Dosage: 40 MG, QD ON DAYS 1-4, 9-12, 17-20 Q28D, ORAL
     Route: 048
     Dates: start: 20050813

REACTIONS (4)
  - ATRIAL FLUTTER [None]
  - CARDIAC FAILURE CONGESTIVE [None]
  - CHILLS [None]
  - DYSPNOEA [None]
